FAERS Safety Report 7380203-7 (Version None)
Quarter: 2011Q1

REPORT INFORMATION
  Report Type: 
  Country: None (occurrence: None)
  Receive Date: 20110329
  Receipt Date: 20110127
  Transmission Date: 20110831
  Serious: No
  Sender: FDA-Public Use
  Company Number: US-MYLANLABS-2011S1000425

PATIENT
  Age: 74 Year
  Sex: Female

DRUGS (11)
  1. LISINOPRIL [Concomitant]
     Indication: BLOOD PRESSURE INCREASED
     Route: 048
  2. MAGNESIUM [Concomitant]
     Route: 048
  3. ZINC [Concomitant]
     Route: 048
  4. VITAMIN D [Concomitant]
  5. ESTRADIOL [Suspect]
     Indication: HORMONE REPLACEMENT THERAPY
     Dosage: CHANGED QW
     Route: 062
     Dates: start: 20090101
  6. METFORMIN HCL [Concomitant]
     Indication: DIABETES MELLITUS
     Route: 048
  7. VITAMIN D [Concomitant]
     Route: 048
  8. ALEVE [Concomitant]
     Route: 048
  9. COQ10 [Concomitant]
  10. ASPIRIN [Concomitant]
     Route: 048
  11. CALCIUM [Concomitant]
     Route: 048

REACTIONS (5)
  - APPLICATION SITE PRURITUS [None]
  - APPLICATION SITE RASH [None]
  - APPLICATION SITE ERYTHEMA [None]
  - APPLICATION SITE IRRITATION [None]
  - APPLICATION SITE EROSION [None]
